FAERS Safety Report 8607392-8 (Version None)
Quarter: 2012Q3

REPORT INFORMATION
  Report Type: 
  Country: None (occurrence: None)
  Receive Date: 20120821
  Receipt Date: 20120811
  Transmission Date: 20120928
  Serious: Yes (Hospitalization)
  Sender: FDA-Public Use
  Company Number: US-BAYER-2012-024509

PATIENT
  Age: 22 Year
  Sex: Female
  Weight: 50.794 kg

DRUGS (14)
  1. COLAZAL [Concomitant]
     Indication: COLITIS
     Dosage: UNK
     Route: 048
     Dates: start: 20080301, end: 20080601
  2. METHOTREXATE [Concomitant]
     Indication: COLITIS
     Dosage: 15 MG,WEEKLY
     Route: 023
  3. TYLENOL [Concomitant]
     Indication: HEADACHE
  4. YAZ [Suspect]
     Indication: CONTRACEPTION
     Dosage: UNK
     Dates: start: 20080101, end: 20111001
  5. VALTREX [Concomitant]
     Indication: COLITIS
     Dosage: UNK
     Route: 048
     Dates: start: 20090201, end: 20110701
  6. YAZ [Suspect]
     Dosage: UNK
     Dates: start: 20091101, end: 20110901
  7. PREDNISONE [Concomitant]
     Indication: COLITIS
     Dosage: 10 MG, DAILY
     Route: 048
     Dates: start: 20080101, end: 20111201
  8. ASACOL [Concomitant]
     Indication: COLITIS
     Dosage: 400 MG, DAILY
     Route: 048
     Dates: start: 20080701
  9. ZOFRAN [Concomitant]
     Indication: NAUSEA
     Dosage: 4 MG, PRN
  10. PROTONIX [Concomitant]
     Indication: COLITIS
     Dosage: 40 MG, DAILY
     Route: 048
  11. PPD3 [Concomitant]
     Indication: TUBERCULIN TEST POSITIVE
     Dosage: UNK
     Route: 023
     Dates: start: 20110901
  12. CIPROFLOXACIN [Concomitant]
     Dosage: 250 MG, UNK
     Route: 048
  13. LORTAB [Concomitant]
     Indication: PAIN
  14. FOLIC ACID [Concomitant]
     Indication: COLITIS
     Dosage: 1 MG, DAILY
     Route: 048

REACTIONS (18)
  - ATELECTASIS [None]
  - PAIN [None]
  - INJURY [None]
  - HYPOAESTHESIA [None]
  - ANXIETY [None]
  - DEPRESSION [None]
  - PNEUMONIA [None]
  - CHEST PAIN [None]
  - LOSS OF CONSCIOUSNESS [None]
  - TRANSIENT ISCHAEMIC ATTACK [None]
  - SPEECH DISORDER [None]
  - ASTHENIA [None]
  - EMOTIONAL DISTRESS [None]
  - PULMONARY EMBOLISM [None]
  - DEEP VEIN THROMBOSIS [None]
  - DIZZINESS [None]
  - HEADACHE [None]
  - INSOMNIA [None]
